FAERS Safety Report 10058272 (Version 1)
Quarter: 2014Q2

REPORT INFORMATION
  Report Type: Spontaneous
  Country: FR (occurrence: FR)
  Receive Date: 20140404
  Receipt Date: 20140404
  Transmission Date: 20141212
  Serious: Yes (Hospitalization)
  Sender: FDA-Public Use
  Company Number: FR-ACCORD-022875

PATIENT
  Age: 63 Year
  Sex: Female

DRUGS (13)
  1. LOXEN [Concomitant]
     Dosage: NICARDIPINE HYDROCHLORIDE
  2. ALPRAZOLAM [Concomitant]
     Dosage: MYLAN^S ALPRAZOLAM
  3. PERJETA [Suspect]
     Indication: HER-2 POSITIVE BREAST CANCER
     Route: 042
     Dates: start: 20140210
  4. METHYLPREDNISOLONE [Suspect]
     Indication: PRODUCT USED FOR UNKNOWN INDICATION
     Dosage: MYLAN^S METHYLPREDNISOLONE
     Route: 042
     Dates: start: 20140207, end: 20140219
  5. DUPHALAC [Concomitant]
  6. GLYCOTHYMOLIN [Concomitant]
  7. OXYCONTIN [Concomitant]
  8. OXYNORM [Concomitant]
  9. ZARZIO [Concomitant]
  10. HERCEPTIN [Suspect]
     Indication: HER-2 POSITIVE BREAST CANCER
     Route: 042
     Dates: start: 20140210
  11. DOCETAXEL ACCORD [Suspect]
     Indication: HER-2 POSITIVE BREAST CANCER
     Route: 042
     Dates: start: 20140210
  12. AMLODIPINE/AMLODIPINE BESILATE/AMLODIPINE MALEATE/AMLODIPINE MESILATE [Concomitant]
     Dosage: ARROW^S AMLODIPINE
  13. OXYNORMORO [Concomitant]

REACTIONS (1)
  - Dermo-hypodermitis [Recovered/Resolved]
